FAERS Safety Report 7085319-0 (Version None)
Quarter: 2010Q4

REPORT INFORMATION
  Report Type: 
  Country: None (occurrence: None)
  Receive Date: 20101105
  Receipt Date: 20101027
  Transmission Date: 20110411
  Serious: Yes (Other)
  Sender: FDA-Public Use
  Company Number: US-PFIZER INC-2010137200

PATIENT
  Sex: Female
  Weight: 90.703 kg

DRUGS (1)
  1. CAMPTOSAR [Suspect]
     Indication: COLORECTAL CANCER
     Dosage: 90 MG, UNK
     Route: 042
     Dates: start: 20090818

REACTIONS (13)
  - ABDOMINAL DISCOMFORT [None]
  - BLOOD PRESSURE ABNORMAL [None]
  - DISEASE RECURRENCE [None]
  - DIZZINESS [None]
  - HEART RATE DECREASED [None]
  - LIVEDO RETICULARIS [None]
  - NAUSEA [None]
  - OXYGEN SATURATION ABNORMAL [None]
  - PAIN [None]
  - PALLOR [None]
  - PERIPHERAL ARTERIAL OCCLUSIVE DISEASE [None]
  - PERIPHERAL COLDNESS [None]
  - PIGMENTATION DISORDER [None]
